FAERS Safety Report 5467289-1 (Version None)
Quarter: 2007Q3

REPORT INFORMATION
  Report Type: 
  Country: None (occurrence: None)
  Receive Date: 20070925
  Receipt Date: 20070918
  Transmission Date: 20080115
  Serious: Yes (Other)
  Sender: FDA-Public Use
  Company Number: US-PFIZER INC-2007015120

PATIENT
  Sex: Male
  Weight: 72.6 kg

DRUGS (12)
  1. VIAGRA [Suspect]
  2. CORDARONE [Suspect]
  3. ALTACE [Concomitant]
  4. BETAPACE [Concomitant]
  5. ALDACTONE [Concomitant]
  6. ZOCOR [Concomitant]
  7. LASIX [Concomitant]
  8. PEPCID [Concomitant]
  9. WARFARIN SODIUM [Concomitant]
  10. PERCOCET [Concomitant]
  11. DIGOXIN [Concomitant]
  12. FOLIC ACID [Concomitant]

REACTIONS (3)
  - BLINDNESS [None]
  - OPTIC ISCHAEMIC NEUROPATHY [None]
  - VISUAL FIELD DEFECT [None]
